FAERS Safety Report 7945070-9 (Version None)
Quarter: 2011Q4

REPORT INFORMATION
  Report Type: 
  Country: None (occurrence: None)
  Receive Date: 20111129
  Receipt Date: 20111116
  Transmission Date: 20120403
  Serious: Yes (Other)
  Sender: FDA-Public Use
  Company Number: JP-ASTELLAS-2011US007876

PATIENT
  Age: 61 Year
  Sex: Female

DRUGS (1)
  1. TARCEVA [Suspect]
     Indication: LUNG NEOPLASM MALIGNANT
     Dosage: 150 MG, UID/QD
     Route: 048
     Dates: start: 20110101

REACTIONS (7)
  - FALL [None]
  - INGROWING NAIL [None]
  - RASH [None]
  - UPPER LIMB FRACTURE [None]
  - GAIT DISTURBANCE [None]
  - CONJUNCTIVITIS [None]
  - MUSCULAR WEAKNESS [None]
